FAERS Safety Report 9901702 (Version 7)
Quarter: 2018Q2

REPORT INFORMATION
  Report Type: Report from Study
  Country: FR (occurrence: FR)
  Receive Date: 20140217
  Receipt Date: 20180510
  Transmission Date: 20180711
  Serious: Yes (Hospitalization)
  Sender: FDA-Public Use
  Company Number: FR-ROCHE-1329598

PATIENT
  Age: 56 Year
  Sex: Female

DRUGS (16)
  1. PERTUZUMAB. [Suspect]
     Active Substance: PERTUZUMAB
     Indication: HER-2 POSITIVE BREAST CANCER
     Dosage: DAY 1 OF CYCLE 1 (LOADING DOSE)?LAST DOSE PRIOR TO THE INCREASE OF PERICARDIAL EFFUSION: 02/OCT/2013
     Route: 042
     Dates: start: 20131002, end: 20131004
  2. SOLUPRED (FRANCE) [Concomitant]
     Active Substance: PREDNISOLONE
     Route: 065
     Dates: start: 20140104
  3. VERSATIS [Concomitant]
     Active Substance: LIDOCAINE
     Dosage: 2 UNITS
     Route: 065
     Dates: start: 20131008
  4. LOVENOX [Concomitant]
     Active Substance: ENOXAPARIN SODIUM
     Indication: PROPHYLAXIS
     Route: 065
     Dates: start: 20131019, end: 20131027
  5. OMEPRAZOLE. [Concomitant]
     Active Substance: OMEPRAZOLE
     Route: 065
     Dates: start: 20131008, end: 20131018
  6. TRASTUZUMAB. [Suspect]
     Active Substance: TRASTUZUMAB
     Indication: HER-2 POSITIVE BREAST CANCER
     Dosage: DAY 1 OF CYCLE 1 (LOADING DOSE)?LAST DOSE PRIOR TO THE INCREASE OF PERICARDIAL EFFUSION: 02/OCT/2013
     Route: 042
     Dates: start: 20131002, end: 20131204
  7. TAVANIC [Concomitant]
     Active Substance: LEVOFLOXACIN
     Route: 065
     Dates: start: 20131016, end: 20131022
  8. TRASTUZUMAB. [Suspect]
     Active Substance: TRASTUZUMAB
     Dosage: MAINTENANCE DOSE?LAST DOSE PRIOR TO THE PERICARDIAL TAMPONADE: 04/DEC/2013
     Route: 042
     Dates: start: 20131023
  9. DAFALGAN [Concomitant]
     Active Substance: ACETAMINOPHEN
     Indication: PROCEDURAL PAIN
     Route: 065
     Dates: start: 20131019, end: 20131027
  10. VOGALENE [Concomitant]
     Active Substance: METOPIMAZINE
     Route: 065
     Dates: start: 201310
  11. DOCETAXEL. [Suspect]
     Active Substance: DOCETAXEL
     Indication: HER-2 POSITIVE BREAST CANCER
     Dosage: LAST DOSE PRIOR TO THE INCREASE OF PERICARDIAL EFFUSION: 03/OCT/2013: 163MG?LAST DOSE PRIOR TO THE P
     Route: 042
     Dates: start: 20131003, end: 20131204
  12. LYRICA [Concomitant]
     Active Substance: PREGABALIN
     Route: 065
     Dates: start: 20131001, end: 20131008
  13. SOLUPRED (FRANCE) [Concomitant]
     Active Substance: PREDNISOLONE
     Route: 065
     Dates: start: 20131008, end: 20131018
  14. NEULASTA [Concomitant]
     Active Substance: PEGFILGRASTIM
     Route: 065
     Dates: start: 20131023
  15. PERTUZUMAB. [Suspect]
     Active Substance: PERTUZUMAB
     Dosage: MAINTENANCE DOSE?LAST DOSE PRIOR TO THE PERICARDIAL TAMPONADE: 04/DEC/2013
     Route: 042
     Dates: start: 20131023
  16. LYRICA [Concomitant]
     Active Substance: PREGABALIN
     Route: 065
     Dates: start: 20131008, end: 20131029

REACTIONS (2)
  - Pericardial effusion [Recovered/Resolved]
  - Cardiac tamponade [Recovered/Resolved]

NARRATIVE: CASE EVENT DATE: 20131016
